FAERS Safety Report 15684134 (Version 2)
Quarter: 2018Q4

REPORT INFORMATION
  Report Type: Spontaneous
  Country: US (occurrence: US)
  Receive Date: 20181204
  Receipt Date: 20181206
  Transmission Date: 20190205
  Serious: No
  Sender: FDA-Public Use
  Company Number: US-BAYER-2018-223627

PATIENT
  Age: 59 Year
  Sex: Male

DRUGS (4)
  1. ALEVE PM [Suspect]
     Active Substance: DIPHENHYDRAMINE HYDROCHLORIDE\NAPROXEN SODIUM
     Indication: PROCEDURAL PAIN
     Dosage: 4 DF, ONCE
     Route: 048
     Dates: start: 20181203, end: 20181203
  2. LISINOPRIL. [Concomitant]
     Active Substance: LISINOPRIL
  3. DIURETIC [HYDROCHLOROTHIAZIDE] [Concomitant]
     Dosage: UNK
  4. HYDROCHLOROTHIAZIDE. [Concomitant]
     Active Substance: HYDROCHLOROTHIAZIDE

REACTIONS (3)
  - Extra dose administered [Recovered/Resolved]
  - Product use in unapproved indication [Unknown]
  - Somnolence [Unknown]

NARRATIVE: CASE EVENT DATE: 20181203
